FAERS Safety Report 20041348 (Version 1)
Quarter: 2021Q4

REPORT INFORMATION
  Report Type: Spontaneous
  Country: JP (occurrence: JP)
  Receive Date: 20211107
  Receipt Date: 20211107
  Transmission Date: 20220303
  Serious: Yes (Other)
  Sender: FDA-Public Use
  Company Number: JP-NOVARTISPH-NVSJ2021JP018029

PATIENT
  Sex: Female

DRUGS (4)
  1. DIOVAN [Suspect]
     Active Substance: VALSARTAN
     Indication: Hypertension
     Dosage: UNK  EVENING
     Route: 048
     Dates: start: 200905
  2. DIOVAN [Suspect]
     Active Substance: VALSARTAN
     Dosage: UNK BREAKFAST
     Route: 048
  3. UNSPECIFIED INGREDIENT [Suspect]
     Active Substance: UNSPECIFIED INGREDIENT
     Indication: Product used for unknown indication
     Dosage: UNK
     Route: 065
  4. VALSARTAN [Concomitant]
     Active Substance: VALSARTAN
     Indication: Product used for unknown indication
     Dosage: UNK  TAKING THE DRUG FOR 2 ~ 3 MONTHS.
     Route: 048

REACTIONS (3)
  - Anaphylactic reaction [Unknown]
  - Blood pressure decreased [Unknown]
  - Hepatic function abnormal [Unknown]
